FAERS Safety Report 6247248-1 (Version None)
Quarter: 2009Q2

REPORT INFORMATION
  Report Type: 
  Country: None (occurrence: None)
  Receive Date: 20090624
  Receipt Date: 20090624
  Transmission Date: 20091009
  Serious: Yes (Life-Threatening, Hospitalization)
  Sender: FDA-Public Use
  Company Number: None

PATIENT
  Sex: Male
  Weight: 85.2 kg

DRUGS (2)
  1. ACETAMINOPHEN [Suspect]
     Dates: start: 20090413
  2. ASPIRIN [Suspect]
     Dates: start: 20090413

REACTIONS (6)
  - DRUG LEVEL INCREASED [None]
  - DYSPNOEA [None]
  - INCORRECT DOSE ADMINISTERED [None]
  - RENAL FAILURE ACUTE [None]
  - RHABDOMYOLYSIS [None]
  - UNRESPONSIVE TO STIMULI [None]
